FAERS Safety Report 25770103 (Version 5)
Quarter: 2025Q4

REPORT INFORMATION
  Report Type: Report from Study
  Country: EU (occurrence: EU)
  Receive Date: 20250907
  Receipt Date: 20251008
  Transmission Date: 20260117
  Serious: Yes (Other)
  Sender: ABBVIE
  Company Number: EU-ABBVIE-6432902

PATIENT
  Age: 80 Year
  Sex: Male
  Weight: 78 kg

DRUGS (2)
  1. CARBIDOPA\LEVODOPA [Suspect]
     Active Substance: CARBIDOPA\LEVODOPA
     Indication: Parkinson^s disease
     Route: 050
     Dates: start: 20221114, end: 202509
  2. CARBIDOPA\LEVODOPA [Suspect]
     Active Substance: CARBIDOPA\LEVODOPA
     Dosage: RE-STARTED
     Route: 050
     Dates: start: 2025

REACTIONS (10)
  - Volvulus [Unknown]
  - Intestinal obstruction [Recovered/Resolved]
  - Off label use [Unknown]
  - Device breakage [Unknown]
  - Product leakage [Not Recovered/Not Resolved]
  - Confusional state [Recovered/Resolved]
  - Device dislocation [Unknown]
  - Device leakage [Recovered/Resolved]
  - Stoma site discharge [Recovered/Resolved]
  - Device breakage [Unknown]

NARRATIVE: CASE EVENT DATE: 20250820
